FAERS Safety Report 8505307-4 (Version None)
Quarter: 2012Q3

REPORT INFORMATION
  Report Type: 
  Country: None (occurrence: None)
  Receive Date: 20120712
  Receipt Date: 20120703
  Transmission Date: 20120928
  Serious: Yes (Hospitalization)
  Sender: FDA-Public Use
  Company Number: US-BAYER-2012-019543

PATIENT
  Age: 23 Year
  Sex: Female
  Weight: 79.819 kg

DRUGS (8)
  1. DROSPIRENONE AND ETHINYL ESTRADIOL [Suspect]
     Indication: CONTRACEPTION
     Dosage: UNK
     Dates: start: 20091101, end: 20100601
  2. PRILOSEC [Concomitant]
     Indication: ABDOMINAL PAIN UPPER
     Dosage: 20 MG, 1 TABLET DAILY
     Dates: start: 20091025, end: 20100101
  3. OMEPRAZOLE [Concomitant]
     Dosage: 20 MG, UNK
  4. YASMIN [Suspect]
     Indication: CONTRACEPTION
     Dosage: UNK
     Dates: start: 20070101, end: 20080701
  5. IBUPROFEN [Concomitant]
     Indication: PAIN
     Dosage: 200 MG,EVERY 4-6 HOURS
     Dates: start: 20090701, end: 20091201
  6. CAMILA [Concomitant]
     Indication: CONTRACEPTION
     Dosage: UNK
     Dates: start: 20090801, end: 20091201
  7. CYCLOBENZAPRINE [Concomitant]
     Dosage: 5 MG, UNK
  8. HYDROCODONE BITARTRATE [Concomitant]
     Dosage: 5/500 MG

REACTIONS (5)
  - INJURY [None]
  - CHOLECYSTITIS CHRONIC [None]
  - PAIN [None]
  - ABDOMINAL PAIN UPPER [None]
  - CHOLELITHIASIS [None]
